FAERS Safety Report 10560201 (Version 3)
Quarter: 2015Q1

REPORT INFORMATION
  Report Type: Spontaneous
  Country: DE (occurrence: DE)
  Receive Date: 20141103
  Receipt Date: 20150126
  Transmission Date: 20150720
  Serious: Yes (Life-Threatening, Hospitalization, Other)
  Sender: FDA-Public Use
  Company Number: DE-JNJFOC-20141015164

PATIENT
  Age: 72 Year
  Sex: Female
  Weight: 83 kg

DRUGS (9)
  1. XARELTO [Suspect]
     Active Substance: RIVAROXABAN
     Indication: DEEP VEIN THROMBOSIS
     Route: 048
     Dates: start: 20131210, end: 20140619
  2. ARCOXIA [Concomitant]
     Active Substance: ETORICOXIB
     Indication: PROPHYLAXIS
     Route: 065
     Dates: start: 20131010, end: 20131020
  3. ALLOPURINOL. [Concomitant]
     Active Substance: ALLOPURINOL
     Route: 065
     Dates: start: 2007, end: 20140618
  4. TORASEMID [Concomitant]
     Active Substance: TORSEMIDE
     Route: 065
     Dates: start: 2004, end: 20140618
  5. JANUVIA [Concomitant]
     Active Substance: SITAGLIPTIN PHOSPHATE
     Route: 065
     Dates: end: 20140618
  6. ENALAPRIL [Concomitant]
     Active Substance: ENALAPRIL
     Route: 065
     Dates: start: 2002
  7. BISO-PUREN [Concomitant]
     Dosage: UNK, UNK
     Route: 065
  8. XARELTO [Suspect]
     Active Substance: RIVAROXABAN
     Indication: THROMBOSIS PROPHYLAXIS
     Route: 048
     Dates: start: 20131210, end: 20140619
  9. METFORMIN [Concomitant]
     Active Substance: METFORMIN HYDROCHLORIDE
     Dosage: UNK
     Route: 065
     Dates: start: 2002

REACTIONS (1)
  - Drug-induced liver injury [Recovering/Resolving]

NARRATIVE: CASE EVENT DATE: 201406
